FAERS Safety Report 24467292 (Version 1)
Quarter: 2024Q4

REPORT INFORMATION
  Report Type: Report from Study
  Country: US (occurrence: US)
  Receive Date: 20241018
  Receipt Date: 20241018
  Transmission Date: 20250114
  Serious: No
  Sender: ROCHE
  Company Number: US-ROCHE-3569474

PATIENT
  Age: 65 Year
  Sex: Male

DRUGS (10)
  1. XOLAIR [Suspect]
     Active Substance: OMALIZUMAB
     Indication: Asthma
     Route: 058
  2. AZELASTINE HYDROCHLORIDE [Concomitant]
     Active Substance: AZELASTINE HYDROCHLORIDE
  3. SILDENAFIL [Concomitant]
     Active Substance: SILDENAFIL
  4. FLUTICASONE PROPIONATE [Concomitant]
     Active Substance: FLUTICASONE PROPIONATE
  5. FAMOTIDINE [Concomitant]
     Active Substance: FAMOTIDINE
  6. VALSARTAN [Concomitant]
     Active Substance: VALSARTAN
  7. ALBUTEROL SULFATE [Concomitant]
     Active Substance: ALBUTEROL SULFATE
  8. SKYRIZI [Concomitant]
     Active Substance: RISANKIZUMAB-RZAA
  9. ROSUVASTATIN CALCIUM [Concomitant]
     Active Substance: ROSUVASTATIN CALCIUM
  10. SPIRIVA [Concomitant]
     Active Substance: TIOTROPIUM BROMIDE MONOHYDRATE

REACTIONS (4)
  - Oropharyngeal pain [Unknown]
  - Blood immunoglobulin E increased [Unknown]
  - Blood pressure abnormal [Unknown]
  - Heart rate increased [Unknown]
